FAERS Safety Report 23461442 (Version 1)
Quarter: 2024Q1

REPORT INFORMATION
  Report Type: Spontaneous
  Country: US (occurrence: None)
  Receive Date: 20240130
  Receipt Date: 20240130
  Transmission Date: 20240410
  Serious: Yes (Death)
  Sender: FDA-Public Use
  Company Number: None

PATIENT
  Age: 54 Year
  Sex: Female
  Weight: 63 kg

DRUGS (37)
  1. PROMACTA [Suspect]
     Active Substance: ELTROMBOPAG OLAMINE
     Indication: Immune thrombocytopenia
     Dosage: 50MG DAILY ORAL?
     Route: 048
     Dates: start: 20200311, end: 20240127
  2. ZOFRAN [Concomitant]
  3. CETIRIZINE [Concomitant]
  4. HYDROXYZINE [Concomitant]
     Active Substance: HYDROXYZINE HYDROCHLORIDE
  5. CILOSTAZOL [Concomitant]
     Active Substance: CILOSTAZOL
  6. GLUCOSE TABLETS [Concomitant]
  7. ALBUTEROL [Concomitant]
  8. SIMETHICONE (DIMETHICONE) [Concomitant]
     Active Substance: DIMETHICONE
  9. TYLENOL [Concomitant]
  10. FIORINAL W/CODEINE [Concomitant]
  11. FOLIC ACID [Concomitant]
  12. CEFAZOLIN [Concomitant]
     Active Substance: CEFAZOLIN
  13. MIDODRINE [Concomitant]
  14. PROVIGIL [Concomitant]
  15. HUMALOG [Concomitant]
  16. SEMGLEE [Concomitant]
  17. MECLIZINE [Concomitant]
     Active Substance: MECLIZINE HYDROCHLORIDE
  18. CALCIUM ACETATE [Concomitant]
  19. MELATONIN [Concomitant]
     Active Substance: MELATONIN
  20. PROTONIX [Concomitant]
     Active Substance: PANTOPRAZOLE SODIUM
  21. ASPIRIN [Concomitant]
     Active Substance: ASPIRIN
  22. ATORVASTATIN [Concomitant]
  23. RENVELA [Concomitant]
  24. PYRIDOXINE [Concomitant]
     Active Substance: PYRIDOXINE
  25. INSULIN LISPRO [Concomitant]
     Active Substance: INSULIN LISPRO
  26. PREDNISOLONE OPHTHALMIC SOLUTION [Concomitant]
  27. MEGESTROL [Concomitant]
     Active Substance: MEGESTROL
  28. ROPINIROLE [Concomitant]
  29. MIRTAZAPINE [Concomitant]
  30. LSOSORBIDE MONONITRATE [Concomitant]
  31. SEROQUEL [Concomitant]
  32. LORAZEPAM [Concomitant]
  33. METOPROLOL [Concomitant]
  34. AMLODIPINE [Concomitant]
  35. LANTUS [Concomitant]
  36. LORATADINE [Concomitant]
  37. AMBIEN [Concomitant]
     Active Substance: ZOLPIDEM TARTRATE

REACTIONS (3)
  - Anaemia [None]
  - Sepsis [None]
  - Septic encephalopathy [None]

NARRATIVE: CASE EVENT DATE: 20240127
